FAERS Safety Report 11552568 (Version 1)
Quarter: 2015Q3

REPORT INFORMATION
  Report Type: Spontaneous
  Country: DE (occurrence: DE)
  Receive Date: 20150925
  Receipt Date: 20150925
  Transmission Date: 20151125
  Serious: Yes (Hospitalization)
  Sender: FDA-Public Use
  Company Number: DE-ROCHE-1638243

PATIENT
  Sex: Female

DRUGS (1)
  1. XOLAIR [Suspect]
     Active Substance: OMALIZUMAB
     Indication: ASTHMA
     Dosage: 1 DF
     Route: 065

REACTIONS (9)
  - Haematuria [Unknown]
  - Appendicitis [Unknown]
  - Vasculitis [Unknown]
  - Hypertension [Unknown]
  - Allergic granulomatous angiitis [Unknown]
  - Pneumonia [Unknown]
  - Renal disorder [Unknown]
  - Eosinophilia [Unknown]
  - Skin disorder [Unknown]
